FAERS Safety Report 10682916 (Version 2)
Quarter: 2014Q4

REPORT INFORMATION
  Report Type: Spontaneous
  Country: US (occurrence: US)
  Receive Date: 20141230
  Receipt Date: 20141230
  Transmission Date: 20150529
  Serious: Yes (Other)
  Sender: FDA-Public Use
  Company Number: US-BAXTER-2014BAX073024

PATIENT
  Sex: Female

DRUGS (3)
  1. STERILE WATER FOR INJECTION [Suspect]
     Active Substance: WATER
     Indication: DIALYSIS
     Route: 042
  2. PROSOL [Suspect]
     Active Substance: ALANINE\ARGININE\ASPARTIC ACID\GLUTAMIC ACID\GLYCINE\HISTIDINE\ISOLEUCINE\LEUCINE\LYSINE ACETATE\METHIONINE\PHENYLALANINE\PROLINE\SERINE\THREONINE\TRYPTOPHAN\TYROSINE\VALINE
     Indication: PARENTERAL NUTRITION
     Route: 042
  3. 5% DEXTROSE INJECTION USP [Suspect]
     Active Substance: DEXTROSE
     Indication: DIALYSIS
     Route: 042

REACTIONS (2)
  - Device connection issue [Recovered/Resolved]
  - Haemorrhage [Unknown]
